FAERS Safety Report 14305048 (Version 1)
Quarter: 2017Q4

REPORT INFORMATION
  Report Type: Spontaneous
  Country: JP (occurrence: JP)
  Receive Date: 20171219
  Receipt Date: 20171219
  Transmission Date: 20180321
  Serious: Yes (Other)
  Sender: FDA-Public Use
  Company Number: JP-OTSUKA-005031

PATIENT
  Age: 37 Year
  Sex: Female
  Weight: 60 kg

DRUGS (11)
  1. HERBAL MIXTURE [Concomitant]
     Active Substance: HERBALS
     Indication: PRODUCT USED FOR UNKNOWN INDICATION
     Dosage: UNK
     Route: 065
  2. ABILIFY [Suspect]
     Active Substance: ARIPIPRAZOLE
     Indication: PSYCHIATRIC SYMPTOM
     Dosage: 3 MG, QD
     Route: 048
     Dates: start: 20080108, end: 20080121
  3. AMPLIT [Suspect]
     Active Substance: LOFEPRAMINE HYDROCHLORIDE
     Dosage: 25 MG, QD
     Route: 048
     Dates: start: 20080425, end: 20080519
  4. AMPLIT [Suspect]
     Active Substance: LOFEPRAMINE HYDROCHLORIDE
     Dosage: 25 MG, BID
     Route: 048
     Dates: start: 20080520, end: 20081103
  5. AMPLIT [Suspect]
     Active Substance: LOFEPRAMINE HYDROCHLORIDE
     Indication: DEPRESSIVE SYMPTOM
     Dosage: 25 MG, TID
     Route: 048
     Dates: start: 20051028, end: 20080219
  6. AMPLIT [Suspect]
     Active Substance: LOFEPRAMINE HYDROCHLORIDE
     Dosage: 25 MG, BID
     Route: 048
     Dates: start: 20080220, end: 20080424
  7. DEPAS [Concomitant]
     Active Substance: ETIZOLAM
     Indication: PRODUCT USED FOR UNKNOWN INDICATION
     Dosage: UNK
     Route: 065
  8. RYO-KEI-ZYUTU-KAN-TO [Concomitant]
     Indication: PRODUCT USED FOR UNKNOWN INDICATION
     Dosage: UNK
     Route: 065
  9. ABILIFY [Suspect]
     Active Substance: ARIPIPRAZOLE
     Dosage: 6 MG, QD
     Route: 048
     Dates: start: 20081118
  10. ABILIFY [Suspect]
     Active Substance: ARIPIPRAZOLE
     Dosage: 3 MG, BID
     Route: 048
     Dates: start: 20080122, end: 20081103
  11. AMPLIT [Suspect]
     Active Substance: LOFEPRAMINE HYDROCHLORIDE
     Dosage: 25 MG, BID
     Route: 048
     Dates: start: 20081118

REACTIONS (3)
  - Hepatic steatosis [Recovering/Resolving]
  - Granuloma [Not Recovered/Not Resolved]
  - Blood glucose increased [Unknown]

NARRATIVE: CASE EVENT DATE: 20080715
